FAERS Safety Report 12514598 (Version 1)
Quarter: 2016Q2

REPORT INFORMATION
  Report Type: Spontaneous
  Country: US (occurrence: None)
  Receive Date: 20160628
  Receipt Date: 20160628
  Transmission Date: 20160815
  Serious: Yes (Hospitalization)
  Sender: FDA-Public Use
  Company Number: None

PATIENT
  Age: 78 Year
  Sex: Male
  Weight: 83.92 kg

DRUGS (14)
  1. ZORCO [Concomitant]
  2. STOOL SOFTENER [Concomitant]
     Active Substance: DOCUSATE CALCIUM
  3. CLONIDINE TRANSDERMAL SYSTEM [Suspect]
     Active Substance: CLONIDINE
     Route: 062
     Dates: start: 2010
  4. NEURONTIN [Concomitant]
     Active Substance: GABAPENTIN
  5. COQ10 [Concomitant]
     Active Substance: UBIDECARENONE
  6. GLUCOSAMINE [Concomitant]
     Active Substance: GLUCOSAMINE
  7. IRON [Concomitant]
     Active Substance: IRON
  8. MULTIVITAMIN [Concomitant]
     Active Substance: VITAMINS
  9. BCOMPLEX [Concomitant]
  10. LASIX [Concomitant]
     Active Substance: FUROSEMIDE
  11. NORCO [Concomitant]
     Active Substance: ACETAMINOPHEN\HYDROCODONE BITARTRATE
  12. TRANSADONE [Concomitant]
  13. SHARK CARTILAGE [Concomitant]
     Active Substance: SHARK CARTILAGE\SHARK, UNSPECIFIED
  14. NAPROXEN. [Concomitant]
     Active Substance: NAPROXEN

REACTIONS (4)
  - Chest pain [None]
  - Blood pressure decreased [None]
  - Incorrect dose administered by device [None]
  - Product quality issue [None]

NARRATIVE: CASE EVENT DATE: 20160510
